FAERS Safety Report 21426194 (Version 2)
Quarter: 2022Q4

REPORT INFORMATION
  Report Type: Spontaneous
  Country: US (occurrence: US)
  Receive Date: 20221008
  Receipt Date: 20221027
  Transmission Date: 20230113
  Serious: No
  Sender: FDA-Public Use
  Company Number: US-SA-SAC20221006000915

PATIENT
  Age: 24 Year
  Sex: Female

DRUGS (2)
  1. DUPIXENT [Suspect]
     Active Substance: DUPILUMAB
     Indication: Dermatitis atopic
     Dosage: 600 MG, 1X
     Route: 058
     Dates: start: 202109, end: 202109
  2. DUPIXENT [Suspect]
     Active Substance: DUPILUMAB
     Dosage: 300 MG, QOW
     Route: 058
     Dates: start: 20220921

REACTIONS (13)
  - Mental disorder [Unknown]
  - Emotional disorder [Unknown]
  - Dry skin [Unknown]
  - Sensitive skin [Unknown]
  - Discomfort [Unknown]
  - Eczema [Unknown]
  - Injection site urticaria [Unknown]
  - Pain of skin [Unknown]
  - Skin exfoliation [Unknown]
  - Rash macular [Unknown]
  - Injection site swelling [Unknown]
  - Injection site pruritus [Unknown]
  - Injection site erythema [Unknown]

NARRATIVE: CASE EVENT DATE: 20221016
